FAERS Safety Report 4409486-X (Version None)
Quarter: 2004Q3

REPORT INFORMATION
  Report Type: 
  Country: None (occurrence: None)
  Receive Date: 20040727
  Receipt Date: 20040727
  Transmission Date: 20050211
  Serious: No
  Sender: FDA-Public Use
  Company Number: None

PATIENT
  Age: 38 Year
  Sex: Female
  Weight: 63.5036 kg

DRUGS (3)
  1. OXALIPLATIN 126 MG [Suspect]
     Indication: GASTROINTESTINAL CARCINOMA
     Dosage: 126 MG IV ONCE
     Route: 042
  2. ONDANSETRON [Concomitant]
  3. DEXAMETHASONE [Concomitant]

REACTIONS (3)
  - DYSPNOEA [None]
  - GENERALISED ERYTHEMA [None]
  - NAUSEA [None]
